FAERS Safety Report 9689080 (Version 2)
Quarter: 2013Q4

REPORT INFORMATION
  Report Type: Spontaneous
  Country: DE (occurrence: DE)
  Receive Date: 20131114
  Receipt Date: 20131114
  Transmission Date: 20140711
  Serious: Yes (Other)
  Sender: FDA-Public Use
  Company Number: DE-BRISTOL-MYERS SQUIBB COMPANY-19462720

PATIENT
  Age: 47 Year
  Sex: Male
  Weight: 107 kg

DRUGS (2)
  1. ABILIFY TABS 10 MG [Suspect]
     Indication: PSYCHOTIC DISORDER
     Route: 048
     Dates: start: 201109
  2. QUETIAPINE [Concomitant]
     Indication: SCHIZOPHRENIA, PARANOID TYPE
     Route: 048
     Dates: start: 200509

REACTIONS (1)
  - Pathological gambling [Not Recovered/Not Resolved]
